FAERS Safety Report 6370867-9 (Version None)
Quarter: 2009Q3

REPORT INFORMATION
  Report Type: 
  Country: None (occurrence: None)
  Receive Date: 20090918
  Receipt Date: 20090902
  Transmission Date: 20100115
  Serious: Yes (Hospitalization)
  Sender: FDA-Public Use
  Company Number: 2009BI014945

PATIENT
  Age: 66 Year
  Sex: Male

DRUGS (7)
  1. ZEVALIN [Suspect]
     Indication: FOLLICLE CENTRE LYMPHOMA, FOLLICULAR GRADE I, II, III STAGE III
     Dosage: 799 MBQ; 1X; IV
     Route: 042
     Dates: start: 20081202, end: 20081209
  2. ZEVALIN [Suspect]
     Indication: LYMPHOMA
     Dosage: 799 MBQ; 1X; IV
     Route: 042
     Dates: start: 20081202, end: 20081209
  3. RITUXIMAB [Concomitant]
  4. LOXONIN [Concomitant]
  5. POLARAMINE [Concomitant]
  6. FLUDEOXYGLUCOSE [Concomitant]
  7. FLUDARA [Concomitant]

REACTIONS (2)
  - BONE MARROW FAILURE [None]
  - PLATELET COUNT DECREASED [None]
